FAERS Safety Report 10053125 (Version 1)
Quarter: 2014Q2

REPORT INFORMATION
  Report Type: Spontaneous
  Country: US (occurrence: US)
  Receive Date: 20140402
  Receipt Date: 20140402
  Transmission Date: 20141212
  Serious: Yes (Other)
  Sender: FDA-Public Use
  Company Number: US-MALLINCKRODT-T201304664

PATIENT
  Sex: Female

DRUGS (11)
  1. RESTORIL [Suspect]
     Indication: PRODUCT USED FOR UNKNOWN INDICATION
     Dosage: 30 MG, QHS
     Route: 048
  2. RANEXA [Suspect]
     Indication: PRODUCT USED FOR UNKNOWN INDICATION
     Dosage: 500 MG, UNK
     Route: 048
     Dates: start: 20130822
  3. SEROQUEL [Suspect]
     Indication: PRODUCT USED FOR UNKNOWN INDICATION
     Dosage: 400 MG, QD
     Route: 048
  4. REMERON [Suspect]
     Indication: PRODUCT USED FOR UNKNOWN INDICATION
     Dosage: 45 MG, QHS
     Route: 048
  5. LAMICTAL [Concomitant]
  6. ATIVAN [Concomitant]
  7. TOPROL [Concomitant]
  8. NEXIUM                             /01479302/ [Concomitant]
  9. CARAFATE [Concomitant]
  10. ASA [Concomitant]
  11. LISINOPRIL [Concomitant]

REACTIONS (6)
  - Hallucination [Unknown]
  - Depression [Unknown]
  - Crying [Unknown]
  - Feeling abnormal [Unknown]
  - Panic attack [Unknown]
  - Anxiety [Unknown]
